FAERS Safety Report 17540900 (Version 1)
Quarter: 2020Q1

REPORT INFORMATION
  Report Type: Spontaneous
  Country: US (occurrence: US)
  Receive Date: 20200313
  Receipt Date: 20200313
  Transmission Date: 20200409
  Serious: Yes (Hospitalization)
  Sender: FDA-Public Use
  Company Number: US-RIGEL PHARMACEUTICALS, INC.-2020FOS000116

PATIENT
  Age: 28 Year
  Sex: Female
  Weight: 89.8 kg

DRUGS (1)
  1. TAVALISSE [Suspect]
     Active Substance: FOSTAMATINIB
     Indication: PURPURA NON-THROMBOCYTOPENIC
     Dosage: 150 MG, BID
     Route: 048

REACTIONS (2)
  - Splenectomy [Unknown]
  - Off label use [Unknown]

NARRATIVE: CASE EVENT DATE: 20200302
